FAERS Safety Report 6525530-8 (Version None)
Quarter: 2009Q4

REPORT INFORMATION
  Report Type: 
  Country: None (occurrence: None)
  Receive Date: 20091214
  Receipt Date: 20090217
  Transmission Date: 20100525
  Serious: Yes (Other)
  Sender: FDA-Public Use
  Company Number: 615472

PATIENT
  Sex: Male

DRUGS (2)
  1. PEGASYS [Suspect]
     Indication: HEPATITIS C
     Dosage: 180 UG 1 PER WEEK SUBCUTANEOUS
     Route: 058
  2. COPEGUS [Suspect]
     Indication: HEPATITIS C
     Dosage: 1000 MG

REACTIONS (3)
  - AGITATION [None]
  - ANAEMIA [None]
  - PSYCHOTIC DISORDER [None]
